FAERS Safety Report 19229608 (Version 2)
Quarter: 2021Q3

REPORT INFORMATION
  Report Type: Spontaneous
  Country: US (occurrence: US)
  Receive Date: 20210507
  Receipt Date: 20210915
  Transmission Date: 20211014
  Serious: No
  Sender: FDA-Public Use
  Company Number: US-SA-2021SA149104

PATIENT
  Age: 38 Year
  Sex: Male

DRUGS (3)
  1. DUPIXENT [Suspect]
     Active Substance: DUPILUMAB
     Indication: DERMATITIS ATOPIC
     Dosage: 300 MG, QOW
     Route: 058
     Dates: start: 20210120, end: 20210317
  2. DUPIXENT [Suspect]
     Active Substance: DUPILUMAB
     Dosage: 300 MG, QOW
     Route: 058
     Dates: start: 2021
  3. CELEBREX [Concomitant]
     Active Substance: CELECOXIB
     Dosage: UNK, BID

REACTIONS (4)
  - Intentional dose omission [Unknown]
  - Hip arthroplasty [Unknown]
  - Lacrimation increased [Unknown]
  - Therapy cessation [Unknown]

NARRATIVE: CASE EVENT DATE: 2021
